FAERS Safety Report 8429683-6 (Version None)
Quarter: 2012Q2

REPORT INFORMATION
  Report Type: 
  Country: None (occurrence: None)
  Receive Date: 20120612
  Receipt Date: 20120604
  Transmission Date: 20120825
  Serious: Yes (Hospitalization)
  Sender: FDA-Public Use
  Company Number: US-ABBOTT-12P-163-0942554-00

PATIENT
  Sex: Male
  Weight: 95.794 kg

DRUGS (3)
  1. AZULFIDINE [Concomitant]
     Indication: COLITIS ULCERATIVE
  2. HUMIRA [Suspect]
     Indication: COLITIS ULCERATIVE
     Route: 058
     Dates: start: 20120501
  3. PREDNISONE TAB [Concomitant]
     Indication: COLITIS ULCERATIVE

REACTIONS (4)
  - OFF LABEL USE [None]
  - COLITIS ULCERATIVE [None]
  - INFECTION [None]
  - BANDAEMIA [None]
